FAERS Safety Report 6542424-2 (Version None)
Quarter: 2010Q1

REPORT INFORMATION
  Report Type: 
  Country: None (occurrence: None)
  Receive Date: 20100114
  Receipt Date: 20100114
  Transmission Date: 20100710
  Serious: Yes (Other)
  Sender: FDA-Public Use
  Company Number: None

PATIENT
  Age: 41 Year
  Sex: Female
  Weight: 113.3993 kg

DRUGS (1)
  1. CYMBALTA [Suspect]
     Indication: POST-TRAUMATIC STRESS DISORDER
     Dosage: 20MG 1X DAY PO
     Route: 048
     Dates: start: 20080104, end: 20091223

REACTIONS (16)
  - ANGER [None]
  - ARTHRALGIA [None]
  - CONFUSIONAL STATE [None]
  - CRYING [None]
  - DEPERSONALISATION [None]
  - FOOD CRAVING [None]
  - GASTROINTESTINAL DISORDER [None]
  - INFLUENZA [None]
  - INSOMNIA [None]
  - MOTION SICKNESS [None]
  - NIGHTMARE [None]
  - PARAESTHESIA [None]
  - PARANOIA [None]
  - PRESYNCOPE [None]
  - THINKING ABNORMAL [None]
  - WITHDRAWAL SYNDROME [None]
